FAERS Safety Report 17599997 (Version 4)
Quarter: 2021Q2

REPORT INFORMATION
  Report Type: Spontaneous
  Country: US (occurrence: US)
  Receive Date: 20200330
  Receipt Date: 20210412
  Transmission Date: 20210716
  Serious: Yes (Hospitalization)
  Sender: FDA-Public Use
  Company Number: US-BIOCODEX SA-202000215

PATIENT

DRUGS (6)
  1. DIACOMIT [Suspect]
     Active Substance: STIRIPENTOL
     Dosage: 250MG TWICE DAILY
     Route: 065
  2. TRILEPTAL [Concomitant]
     Active Substance: OXCARBAZEPINE
     Indication: PRODUCT USED FOR UNKNOWN INDICATION
     Route: 065
  3. LORAZEPAM. [Concomitant]
     Active Substance: LORAZEPAM
     Indication: PRODUCT USED FOR UNKNOWN INDICATION
     Route: 065
  4. CLONAZEPAM. [Concomitant]
     Active Substance: CLONAZEPAM
     Indication: PRODUCT USED FOR UNKNOWN INDICATION
     Route: 065
  5. DIACOMIT [Suspect]
     Active Substance: STIRIPENTOL
     Indication: EPILEPSY
     Dosage: 250MG TWICE DAILY
     Route: 065
     Dates: start: 20190509
  6. DIACOMIT [Suspect]
     Active Substance: STIRIPENTOL
     Indication: STATUS EPILEPTICUS
     Dosage: 500MG TWICE DAILY
     Route: 065
     Dates: start: 20200518

REACTIONS (7)
  - Product use in unapproved indication [Unknown]
  - Dyspepsia [Unknown]
  - Dehydration [Unknown]
  - Vomiting [Unknown]
  - Product dose omission issue [Unknown]
  - Complication associated with device [Unknown]
  - Influenza [Unknown]
